FAERS Safety Report 7407966-6 (Version None)
Quarter: 2011Q2

REPORT INFORMATION
  Report Type: 
  Country: None (occurrence: None)
  Receive Date: 20110412
  Receipt Date: 20110406
  Transmission Date: 20111010
  Serious: No
  Sender: FDA-Public Use
  Company Number: US-PFIZER INC-2007000026

PATIENT
  Sex: Female
  Weight: 36.281 kg

DRUGS (2)
  1. GENOTROPIN [Suspect]
     Dosage: 1.6 MG, SIX TIME A WEEK
  2. GENOTROPIN [Suspect]
     Indication: GROWTH HORMONE DEFICIENCY
     Dosage: 0.8 MG, UNK
     Dates: start: 20061214

REACTIONS (2)
  - RASH PRURITIC [None]
  - RASH [None]
